FAERS Safety Report 13942487 (Version 1)
Quarter: 2017Q3

REPORT INFORMATION
  Report Type: Spontaneous
  Country: US (occurrence: US)
  Receive Date: 20170906
  Receipt Date: 20170906
  Transmission Date: 20171127
  Serious: Yes (Other)
  Sender: FDA-Public Use
  Company Number: US-SA-2017SA160468

PATIENT
  Sex: Female

DRUGS (1)
  1. DULCOLAX (BISACODYL) [Suspect]
     Active Substance: BISACODYL
     Route: 065

REACTIONS (6)
  - Dizziness [Unknown]
  - Loss of consciousness [Unknown]
  - Abdominal pain [Unknown]
  - Fear [Unknown]
  - Hyperhidrosis [Unknown]
  - Hypopnoea [Recovering/Resolving]
